FAERS Safety Report 5689415-1 (Version None)
Quarter: 2008Q1

REPORT INFORMATION
  Report Type: 
  Country: None (occurrence: None)
  Receive Date: 20080331
  Receipt Date: 20080321
  Transmission Date: 20080703
  Serious: Yes (Hospitalization, Other)
  Sender: FDA-Public Use
  Company Number: US-PFIZER INC-2008004047

PATIENT
  Sex: Male
  Weight: 113.4 kg

DRUGS (2)
  1. BEXTRA [Suspect]
     Indication: ARTHRALGIA
     Route: 048
  2. BEXTRA [Suspect]
     Indication: BACK PAIN

REACTIONS (4)
  - AMNESIA [None]
  - ANXIETY [None]
  - BACK PAIN [None]
  - CEREBROVASCULAR ACCIDENT [None]
